FAERS Safety Report 5765544-9 (Version None)
Quarter: 2008Q2

REPORT INFORMATION
  Report Type: 
  Country: None (occurrence: None)
  Receive Date: 20080605
  Receipt Date: 20080520
  Transmission Date: 20081010
  Serious: Yes (Other)
  Sender: FDA-Public Use
  Company Number: 2008000518

PATIENT
  Age: 72 Year
  Sex: Male

DRUGS (9)
  1. ERLOTINIB (ERLOTINIB) (TABLET) (ERLOTINIB) [Suspect]
     Indication: LUNG ADENOCARCINOMA
     Dosage: (150 MG, QD), ORAL
     Route: 048
     Dates: start: 20080218
  2. JUVELA NICOTINATE (TOCOPHERYL NICOTINATE) [Concomitant]
  3. BIOFERMIN (BIOFERMIN) [Concomitant]
  4. LOXONIN (LOXOPROFEN SODIUM) [Concomitant]
  5. MUCOSTA (REBAMIPIDE) [Concomitant]
  6. KADIAN [Concomitant]
  7. MYSLEE [Concomitant]
  8. HARNAL (TAMSULOSIN HYDROCHLORIDE) [Concomitant]
  9. EVIPROSTAT (EVIPROSTAT) [Concomitant]

REACTIONS (5)
  - DIARRHOEA [None]
  - FAECAL INCONTINENCE [None]
  - MALAISE [None]
  - PARONYCHIA [None]
  - QUALITY OF LIFE DECREASED [None]
